FAERS Safety Report 14070104 (Version 1)
Quarter: 2017Q4

REPORT INFORMATION
  Report Type: Spontaneous
  Country: FR (occurrence: FR)
  Receive Date: 20171010
  Receipt Date: 20171010
  Transmission Date: 20180321
  Serious: Yes (Other)
  Sender: FDA-Public Use
  Company Number: FR-MERCK KGAA-2029462

PATIENT
  Sex: Female

DRUGS (1)
  1. NOVOTHYROX [Suspect]
     Active Substance: LEVOTHYROXINE SODIUM
     Indication: PRODUCT USED FOR UNKNOWN INDICATION
     Dates: end: 201709

REACTIONS (6)
  - Angina pectoris [Recovering/Resolving]
  - Somnolence [Recovering/Resolving]
  - Decreased appetite [Recovered/Resolved]
  - Feeling abnormal [Recovering/Resolving]
  - Apathy [Recovered/Resolved]
  - Muscle spasms [Recovering/Resolving]
